FAERS Safety Report 5035032-6 (Version None)
Quarter: 2006Q2

REPORT INFORMATION
  Report Type: 
  Country: None (occurrence: None)
  Receive Date: 20060627
  Receipt Date: 20060614
  Transmission Date: 20061013
  Serious: Yes (Other)
  Sender: FDA-Public Use
  Company Number: 2006AC01117

PATIENT
  Age: 42 Year
  Sex: Female
  Weight: 73 kg

DRUGS (3)
  1. ARIMIDEX [Suspect]
     Indication: BREAST CANCER
     Route: 048
     Dates: start: 20050504, end: 20060518
  2. FOSAMAX [Concomitant]
     Indication: PROPHYLAXIS
     Route: 048
     Dates: start: 20011001
  3. CALCI CHEW [Concomitant]
     Indication: PROPHYLAXIS
     Route: 048
     Dates: start: 20050416

REACTIONS (2)
  - DEPRESSION [None]
  - LOSS OF LIBIDO [None]
